FAERS Safety Report 17394990 (Version 1)
Quarter: 2020Q1

REPORT INFORMATION
  Report Type: Spontaneous
  Country: CA (occurrence: CA)
  Receive Date: 20200210
  Receipt Date: 20200210
  Transmission Date: 20200409
  Serious: Yes (Hospitalization, Other)
  Sender: FDA-Public Use
  Company Number: CA-AUROBINDO-AUR-APL-2020-005504

PATIENT
  Age: 60 Year
  Sex: Female

DRUGS (3)
  1. TOPIRAMATE. [Suspect]
     Active Substance: TOPIRAMATE
     Indication: MIGRAINE PROPHYLAXIS
     Dosage: 50 MILLIGRAM, TWO TIMES A DAY
     Route: 048
  2. ACETAMINOPHEN. [Suspect]
     Active Substance: ACETAMINOPHEN
     Indication: PRODUCT USED FOR UNKNOWN INDICATION
     Dosage: UNK
     Route: 065
  3. TOPIRAMATE. [Suspect]
     Active Substance: TOPIRAMATE
     Indication: HEADACHE

REACTIONS (1)
  - Metabolic acidosis [Unknown]
